FAERS Safety Report 5871281-2 (Version None)
Quarter: 2008Q3

REPORT INFORMATION
  Report Type: 
  Country: None (occurrence: None)
  Receive Date: 20080902
  Receipt Date: 20080819
  Transmission Date: 20090109
  Serious: Yes (Hospitalization)
  Sender: FDA-Public Use
  Company Number: 004090

PATIENT
  Age: 7 Year
  Sex: Male

DRUGS (5)
  1. BUSULFEX [Suspect]
     Indication: STEM CELL TRANSPLANT
     Dosage: 68 ML INTRAVENOUS
     Route: 042
     Dates: start: 20071106, end: 20071129
  2. CYCLOPHOSPHAMIDE [Concomitant]
  3. VALPROATE SODIUM [Concomitant]
  4. LENOGRASTIM (LENOGRASTIM) [Concomitant]
  5. CYCLOSPORINE [Concomitant]

REACTIONS (10)
  - ACUTE GRAFT VERSUS HOST DISEASE [None]
  - ANOREXIA [None]
  - BONE MARROW TRANSPLANT [None]
  - CYSTITIS HAEMORRHAGIC [None]
  - DIARRHOEA [None]
  - MALAISE [None]
  - NAUSEA [None]
  - SEPSIS [None]
  - STOMATITIS [None]
  - VOMITING [None]
